FAERS Safety Report 20999605 (Version 5)
Quarter: 2022Q4

REPORT INFORMATION
  Report Type: Spontaneous
  Country: US (occurrence: US)
  Receive Date: 20220623
  Receipt Date: 20221107
  Transmission Date: 20230113
  Serious: Yes (Other)
  Sender: FDA-Public Use
  Company Number: US-BRISTOL-MYERS SQUIBB COMPANY-2022-062737

PATIENT
  Age: 65 Year
  Sex: Male
  Weight: 89.36 kg

DRUGS (2)
  1. POMALYST [Suspect]
     Active Substance: POMALIDOMIDE
     Indication: Plasma cell myeloma
     Dosage: DAILY X 21 DAYS, THEN 7 DAYS OFF
     Route: 048
     Dates: start: 20220520
  2. POMALYST [Suspect]
     Active Substance: POMALIDOMIDE
     Dosage: DAILY X 21 DAYS, THEN 7 DAYS OFF, EVERY 28 DAYS,
     Route: 048
     Dates: start: 20220531

REACTIONS (5)
  - Pericarditis [Recovering/Resolving]
  - Fatigue [Recovering/Resolving]
  - Constipation [Recovering/Resolving]
  - Laboratory test abnormal [Recovering/Resolving]
  - Platelet count decreased [Recovered/Resolved]

NARRATIVE: CASE EVENT DATE: 20220601
